FAERS Safety Report 12590202 (Version 1)
Quarter: 2016Q3

REPORT INFORMATION
  Report Type: Spontaneous
  Country: DE (occurrence: DE)
  Receive Date: 20160725
  Receipt Date: 20160725
  Transmission Date: 20161109
  Serious: Yes (Disabling, Other)
  Sender: FDA-Public Use
  Company Number: DE-TEVA-676500GER

PATIENT
  Age: 49 Year
  Sex: Female
  Weight: 85 kg

DRUGS (1)
  1. TAMOXIFEN [Suspect]
     Active Substance: TAMOXIFEN
     Indication: INTRADUCTAL PROLIFERATIVE BREAST LESION
     Dosage: 20 MILLIGRAM DAILY;
     Route: 048
     Dates: start: 201107

REACTIONS (8)
  - Cardiac failure [Recovered/Resolved with Sequelae]
  - Blood pressure increased [Unknown]
  - Fatigue [Unknown]
  - Paralysis recurrent laryngeal nerve [Recovered/Resolved with Sequelae]
  - Apathy [Unknown]
  - Bladder disorder [Unknown]
  - Limb discomfort [Unknown]
  - Liver function test increased [Unknown]

NARRATIVE: CASE EVENT DATE: 201206
